FAERS Safety Report 23105301 (Version 1)
Quarter: 2023Q4

REPORT INFORMATION
  Report Type: Spontaneous
  Country: US (occurrence: None)
  Receive Date: 20231023
  Receipt Date: 20231023
  Transmission Date: 20240109
  Serious: Yes (Life-Threatening, Hospitalization)
  Sender: FDA-Public Use
  Company Number: None

PATIENT
  Age: 77 Year
  Sex: Male
  Weight: 95 kg

DRUGS (1)
  1. HEPARIN SODIUM [Suspect]
     Active Substance: HEPARIN SODIUM
     Dosage: STRENGTH: 100UNIT/ML/NACL 0.45% INJ
     Dates: start: 20230404, end: 20230405

REACTIONS (2)
  - Thrombocytopenia [None]
  - Pulmonary embolism [None]

NARRATIVE: CASE EVENT DATE: 20230405
